FAERS Safety Report 16006754 (Version 3)
Quarter: 2019Q2

REPORT INFORMATION
  Report Type: Spontaneous
  Country: AT (occurrence: AT)
  Receive Date: 20190226
  Receipt Date: 20190403
  Transmission Date: 20190711
  Serious: Yes (Hospitalization)
  Sender: FDA-Public Use
  Company Number: AT-AMREGENT-20140808

PATIENT
  Age: 45 Year
  Sex: Male
  Weight: 92 kg

DRUGS (20)
  1. METHYLPREDNISOLONE. [Concomitant]
     Active Substance: METHYLPREDNISOLONE
     Dosage: 30 MG
     Route: 065
  2. CALCIUM [Concomitant]
     Active Substance: CALCIUM
     Dosage: 1 GM
     Route: 065
  3. HUMIRA [Concomitant]
     Active Substance: ADALIMUMAB
     Dosage: 40 MG, 1 IN 7 D
     Route: 058
  4. FOLSAN [Concomitant]
     Active Substance: FOLIC ACID
     Dosage: 5 MG
     Route: 048
  5. COLECALCIFEROL/ROUVASTATIN [Concomitant]
     Dosage: 800 IE
     Route: 048
  6. GLADEM [Concomitant]
     Active Substance: SERTRALINE HYDROCHLORIDE
     Dosage: 50 MG
     Route: 048
  7. RECOMBINANT HUMAN ERYTHROPOIETIN [Suspect]
     Active Substance: ERYTHROPOIETIN
     Dosage: UNKNOWN
     Route: 065
  8. ACTONEL [Concomitant]
     Active Substance: RISEDRONATE SODIUM
     Dosage: 35 MG
     Route: 048
  9. TRAMAL [Concomitant]
     Active Substance: TRAMADOL
     Dosage: 100 MG
     Route: 048
  10. ERYPO [Concomitant]
     Dosage: 40000 IE/ML (1 IN 1 WK)
     Route: 058
  11. ERYCYTOL [Concomitant]
     Dosage: 1 IN 1 TOTAL
     Route: 048
  12. VENOFER [Suspect]
     Active Substance: IRON SUCROSE
     Dosage: 2 AMPOULES (1 GM)
     Route: 041
     Dates: start: 20051129, end: 20071123
  13. AZATHIOPRINE. [Concomitant]
     Active Substance: AZATHIOPRINE
     Dosage: 150 MG
     Route: 048
  14. ADALIMUMAB [Concomitant]
     Active Substance: ADALIMUMAB
     Dosage: 5.7143 MG (40 MG,1 IN 1 WK)
     Route: 058
  15. MESALAZINE [Concomitant]
     Active Substance: MESALAMINE
     Dosage: 1.5 MG
     Route: 065
  16. MONOFER [Suspect]
     Active Substance: IRON ISOMALTOSIDE 1000
     Dosage: 100 MG PER MILLILITRE
     Route: 065
     Dates: start: 20120905
  17. CHOLESTAGEL [Concomitant]
     Active Substance: COLESEVELAM HYDROCHLORIDE
     Dosage: 625 MG
     Route: 058
  18. FERINJECT [Suspect]
     Active Substance: FERRIC CARBOXYMALTOSE
     Dosage: 1 GM
     Route: 041
     Dates: start: 20100211, end: 20111118
  19. GLUCOSE 1 PHOSPHAT [Concomitant]
     Dosage: 1 AMPOULE
     Route: 065
     Dates: start: 20110927
  20. ROUVASTATIN CALCIUM [Concomitant]
     Dosage: 1 G PLUS 800 IE
     Route: 048

REACTIONS (19)
  - Hypophosphataemia [Recovering/Resolving]
  - Muscular weakness [Unknown]
  - Groin pain [Recovering/Resolving]
  - Hip fracture [Recovering/Resolving]
  - Hypocalcaemia [Unknown]
  - Vitamin D deficiency [Unknown]
  - Anaemia [Unknown]
  - Hypophosphataemic osteomalacia [Unknown]
  - Hyperphosphaturia [Unknown]
  - Musculoskeletal pain [Unknown]
  - Arthritis reactive [Unknown]
  - Drug ineffective [Unknown]
  - Overdose [Unknown]
  - Iron deficiency [Unknown]
  - Osteoporosis [Unknown]
  - Gait disturbance [Unknown]
  - Hypersensitivity [Unknown]
  - Multiple fractures [Unknown]
  - Pseudofracture [Unknown]

NARRATIVE: CASE EVENT DATE: 20090224
